FAERS Safety Report 16522372 (Version 1)
Quarter: 2019Q3

REPORT INFORMATION
  Report Type: Spontaneous
  Country: US (occurrence: US)
  Receive Date: 20190703
  Receipt Date: 20190703
  Transmission Date: 20191004
  Serious: No
  Sender: FDA-Public Use
  Company Number: US-PFIZER INC-2019281530

PATIENT
  Age: 65 Year
  Sex: Female

DRUGS (2)
  1. PREMARIN [Suspect]
     Active Substance: ESTROGENS, CONJUGATED
     Indication: OVARIAN FAILURE POSTOPERATIVE
     Dosage: 0.3 MG, DAILY (TAKE 1 TABLETS EVERY DAY BY ORAL ROUTE)
     Route: 048
  2. PREMARIN [Suspect]
     Active Substance: ESTROGENS, CONJUGATED
     Indication: MENOPAUSE

REACTIONS (4)
  - Product use in unapproved indication [Unknown]
  - Feeling abnormal [Unknown]
  - Off label use [Unknown]
  - Malaise [Unknown]
